FAERS Safety Report 4562215-1 (Version None)
Quarter: 2005Q1

REPORT INFORMATION
  Report Type: 
  Country: None (occurrence: None)
  Receive Date: 20050127
  Receipt Date: 20050117
  Transmission Date: 20050727
  Serious: Yes (Death, Life-Threatening, Hospitalization)
  Sender: FDA-Public Use
  Company Number: 200510522GDDC

PATIENT
  Age: 61 Year
  Sex: Female

DRUGS (8)
  1. TAXOTERE [Suspect]
     Indication: BREAST NEOPLASM
     Route: 042
     Dates: start: 20041222, end: 20041222
  2. ADRIAMYCIN PFS [Concomitant]
     Indication: BREAST NEOPLASM
     Route: 042
     Dates: start: 20041222, end: 20041222
  3. METHYLPREDNISOLONE [Concomitant]
     Indication: CHEMOTHERAPY
     Route: 042
     Dates: start: 20041222, end: 20041222
  4. RANITIDINE [Concomitant]
     Indication: CHEMOTHERAPY
     Route: 042
     Dates: start: 20041221, end: 20041223
  5. ONDANSETRON [Concomitant]
     Indication: CHEMOTHERAPY
     Route: 042
     Dates: start: 20041222, end: 20041222
  6. DOLASETRON MESYLATE [Concomitant]
     Indication: CHEMOTHERAPY
     Route: 042
     Dates: start: 20041222, end: 20041222
  7. DEXAMETHASONE [Concomitant]
     Indication: CHEMOTHERAPY
     Dosage: DOSE: UNK
     Route: 048
     Dates: start: 20041221, end: 20041223
  8. POLARAMINE [Concomitant]
     Indication: CHEMOTHERAPY
     Dosage: DOSE: UNK
     Route: 048
     Dates: start: 20041221, end: 20041223

REACTIONS (15)
  - ABDOMINAL DISTENSION [None]
  - ABDOMINAL PAIN [None]
  - ACUTE CORONARY SYNDROME [None]
  - ARRHYTHMIA [None]
  - ATRIAL TACHYCARDIA [None]
  - CARDIO-RESPIRATORY ARREST [None]
  - COMA [None]
  - DEHYDRATION [None]
  - DIARRHOEA [None]
  - GASTROINTESTINAL DISORDER [None]
  - HYPERHIDROSIS [None]
  - HYPOTENSION [None]
  - LEUKOPENIA [None]
  - METABOLIC DISORDER [None]
  - VOMITING [None]
